FAERS Safety Report 9915816 (Version 2)
Quarter: 2014Q1

REPORT INFORMATION
  Report Type: Spontaneous
  Country: ES (occurrence: None)
  Receive Date: 20140218
  Receipt Date: 20140307
  Transmission Date: 20141002
  Serious: Yes (Other)
  Sender: FDA-Public Use
  Company Number: DSU-2014-00255

PATIENT
  Age: 63 Year
  Sex: Female

DRUGS (3)
  1. OPENVAS (OLMESARTAN MEDOXOMIL) (20 MILLIGRAM, TABLET) (OLMESARTAN MEDOXOMIL) [Suspect]
     Indication: PRODUCT USED FOR UNKNOWN INDICATION
     Dosage: 20 MG (20 MG, QD), PER ORAL
     Route: 048
     Dates: start: 201306, end: 201309
  2. ALLOPURINOL (ALLOPURINOL) (ALLOPURINOL) [Suspect]
     Indication: PRODUCT USED FOR UNKNOWN INDICATION
     Dosage: 300 MG (300 MG, QD), PER ORAL
     Route: 048
     Dates: start: 201306, end: 201309
  3. ARTEDIL (MANIDIPINE HYDROCHLORIDE) (10 MILLIGRAM, TABLET) (MANIDIPINE HYDROCHLORIDE) [Concomitant]
     Indication: PRODUCT USED FOR UNKNOWN INDICATION
     Route: 048
     Dates: start: 20130927, end: 20131029

REACTIONS (2)
  - Toxic skin eruption [None]
  - Renal failure chronic [None]
